FAERS Safety Report 8012667-X (Version None)
Quarter: 2011Q4

REPORT INFORMATION
  Report Type: 
  Country: None (occurrence: None)
  Receive Date: 20111223
  Receipt Date: 20111223
  Transmission Date: 20120403
  Serious: No
  Sender: FDA-Public Use
  Company Number: None

PATIENT
  Age: 70 Year
  Sex: Female
  Weight: 79.3795 kg

DRUGS (1)
  1. DEXILANT [Suspect]
     Dosage: 60MG OD ORAL
     Route: 048
     Dates: start: 20111204

REACTIONS (5)
  - FATIGUE [None]
  - ASTHENIA [None]
  - ARRHYTHMIA [None]
  - PALPITATIONS [None]
  - DYSPNOEA [None]
